FAERS Safety Report 8906022 (Version 1)
Quarter: 2012Q4

REPORT INFORMATION
  Report Type: 
  Country: US (occurrence: US)
  Receive Date: 20121111
  Receipt Date: 20121111
  Transmission Date: 20130627
  Serious: No
  Sender: FDA-Public Use
  Company Number: US-009507513-1211USA003515

PATIENT
  Age: 61 Year
  Sex: Male

DRUGS (2)
  1. JANUMET XR [Suspect]
     Indication: DIABETES MELLITUS
     Dosage: 50/1000 mg, qd
     Route: 048
     Dates: start: 20121009
  2. HYDROCHLOROTHIAZIDE (+) LISINOPRIL [Concomitant]
     Dosage: Lisnopril with HCTZ 20/25 mg

REACTIONS (1)
  - Visual acuity reduced [Unknown]
